FAERS Safety Report 6645585-X (Version None)
Quarter: 2010Q1

REPORT INFORMATION
  Report Type: 
  Country: None (occurrence: None)
  Receive Date: 20100319
  Receipt Date: 20100319
  Transmission Date: 20100710
  Serious: Yes (Other)
  Sender: FDA-Public Use
  Company Number: None

PATIENT
  Sex: Male

DRUGS (1)
  1. CIMZIA [Suspect]
     Dosage: 200MG EVERY 2 WEEKS SQ
     Route: 058
     Dates: start: 20091023, end: 20100113

REACTIONS (1)
  - LOCALISED INFECTION [None]
